FAERS Safety Report 8404768-9 (Version None)
Quarter: 2012Q2

REPORT INFORMATION
  Report Type: 
  Country: None (occurrence: None)
  Receive Date: 20120601
  Receipt Date: 20120524
  Transmission Date: 20120825
  Serious: Yes (Other)
  Sender: FDA-Public Use
  Company Number: US-ABBOTT-12P-163-0939056-00

PATIENT
  Sex: Female
  Weight: 104.42 kg

DRUGS (8)
  1. HUMIRA [Suspect]
     Indication: RHEUMATOID ARTHRITIS
     Dates: end: 20120101
  2. PREVACID [Concomitant]
     Indication: DIAPHRAGMATIC HERNIA
  3. SERTRALINE HYDROCHLORIDE [Concomitant]
     Indication: ANXIOLYTIC THERAPY
  4. PREVACID [Concomitant]
     Indication: GASTROOESOPHAGEAL REFLUX DISEASE
  5. PREVACID [Concomitant]
     Indication: DYSPEPSIA
  6. COUMADIN [Concomitant]
     Indication: THROMBOSIS PROPHYLAXIS
  7. METHOTREXATE [Concomitant]
     Indication: RHEUMATOID ARTHRITIS
  8. HUMIRA [Suspect]
     Indication: RHEUMATOID ARTHRITIS
     Dates: start: 20120101

REACTIONS (9)
  - LACERATION [None]
  - COUGH [None]
  - INCORRECT DOSE ADMINISTERED [None]
  - DEVICE MALFUNCTION [None]
  - ABDOMINAL ABSCESS [None]
  - LOWER RESPIRATORY TRACT INFECTION [None]
  - PYREXIA [None]
  - FEELING HOT [None]
  - PAIN IN EXTREMITY [None]
